FAERS Safety Report 10680067 (Version 1)
Quarter: 2014Q4

REPORT INFORMATION
  Report Type: Spontaneous
  Country: JP (occurrence: JP)
  Receive Date: 20141229
  Receipt Date: 20141229
  Transmission Date: 20150529
  Serious: Yes (Hospitalization)
  Sender: FDA-Public Use
  Company Number: JP-GLAXOSMITHKLINE INC.-JP2014JPN042361

PATIENT
  Age: 60 Year
  Sex: Female

DRUGS (2)
  1. NAUZELIN [Concomitant]
     Active Substance: DOMPERIDONE
     Dosage: UNK
  2. RELENZA [Suspect]
     Active Substance: ZANAMIVIR
     Indication: INFLUENZA
     Dosage: UNK
     Route: 055

REACTIONS (2)
  - Nausea [Unknown]
  - Hypoaesthesia [Unknown]
